FAERS Safety Report 5333174-9 (Version None)
Quarter: 2007Q2

REPORT INFORMATION
  Report Type: 
  Country: None (occurrence: None)
  Receive Date: 20070521
  Receipt Date: 20070521
  Transmission Date: 20071010
  Serious: Yes (Death)
  Sender: FDA-Public Use
  Company Number: None

PATIENT
  Age: 41 Year
  Sex: Male
  Weight: 74.8435 kg

DRUGS (1)
  1. METHADONE HCL [Suspect]
     Indication: PAIN
     Dates: start: 20061013, end: 20061013

REACTIONS (2)
  - DRUG INTERACTION [None]
  - DRUG TOXICITY [None]
